FAERS Safety Report 9548581 (Version 2)
Quarter: 2013Q3

REPORT INFORMATION
  Report Type: Spontaneous
  Country: US (occurrence: US)
  Receive Date: 20130924
  Receipt Date: 20130924
  Transmission Date: 20140515
  Serious: No
  Sender: FDA-Public Use
  Company Number: US-009507513-1003USA01853

PATIENT
  Sex: Female

DRUGS (2)
  1. MAXALT [Suspect]
     Dosage: 10 MG, UNK
     Route: 048
     Dates: start: 201002
  2. VITAMINS (UNSPECIFIED) [Concomitant]
     Dosage: UNK UNK, QD

REACTIONS (2)
  - Exposure during pregnancy [Recovered/Resolved]
  - No adverse event [Unknown]
